FAERS Safety Report 22323770 (Version 2)
Quarter: 2023Q2

REPORT INFORMATION
  Report Type: Spontaneous
  Country: US (occurrence: US)
  Receive Date: 20230516
  Receipt Date: 20230622
  Transmission Date: 20230721
  Serious: No
  Sender: FDA-Public Use
  Company Number: US-PFIZER INC-PV202300085307

PATIENT
  Sex: Female

DRUGS (1)
  1. PREMARIN [Suspect]
     Active Substance: ESTROGENS, CONJUGATED
     Dosage: 2X/WEEK

REACTIONS (3)
  - Vulvovaginal burning sensation [Unknown]
  - Vulvovaginal dryness [Unknown]
  - Poor quality sleep [Unknown]
